FAERS Safety Report 4509432-4 (Version None)
Quarter: 2004Q4

REPORT INFORMATION
  Report Type: 
  Country: None (occurrence: None)
  Receive Date: 20041025
  Receipt Date: 20040709
  Transmission Date: 20050328
  Serious: Yes (Other)
  Sender: FDA-Public Use
  Company Number: US-JNJFOC-20040702632

PATIENT
  Age: 71 Year
  Sex: Female
  Weight: 77.1115 kg

DRUGS (7)
  1. INFLIXIMAB (INFLIXIMAB, RECOMBINANT) LYOPHILIZED POWDER [Suspect]
     Indication: RHEUMATOID ARTHRITIS
     Dosage: 1 IN 6 WEEK, INTRAVENOUS
     Route: 042
     Dates: start: 20020919
  2. METHOTREXATE [Concomitant]
  3. NAPROXEN [Concomitant]
  4. FOLIC ACID [Concomitant]
  5. HALFPRIN (ACETYLSALICYLIC ACID) [Concomitant]
  6. MULTIVITAMIN (MULTIVITAMINS) [Concomitant]
  7. TUMS (CALCIUM CARBONATE) [Concomitant]

REACTIONS (1)
  - INFUSION RELATED REACTION [None]
